FAERS Safety Report 5409586-1 (Version None)
Quarter: 2007Q3

REPORT INFORMATION
  Report Type: 
  Country: None (occurrence: None)
  Receive Date: 20070809
  Receipt Date: 20070806
  Transmission Date: 20080115
  Serious: Yes (Other)
  Sender: FDA-Public Use
  Company Number: JP-AVENTIS-200712089JP

PATIENT

DRUGS (2)
  1. LASIX [Suspect]
     Route: 048
  2. UNKNOWN DRUG [Concomitant]

REACTIONS (1)
  - STEVENS-JOHNSON SYNDROME [None]
